FAERS Safety Report 5707234-4 (Version None)
Quarter: 2008Q2

REPORT INFORMATION
  Report Type: 
  Country: None (occurrence: None)
  Receive Date: 20080414
  Receipt Date: 20080414
  Transmission Date: 20081010
  Serious: No
  Sender: FDA-Public Use
  Company Number: None

PATIENT
  Age: 61 Year
  Sex: Male
  Weight: 74.3899 kg

DRUGS (10)
  1. ENBREL [Suspect]
     Indication: ARTHRITIS REACTIVE
     Dosage: 50MG ONCE PER WEEK SQ
     Route: 058
     Dates: start: 20080310, end: 20080310
  2. ENBREL [Suspect]
     Indication: PROSTATIC DISORDER
     Dosage: 50MG ONCE PER WEEK SQ
     Route: 058
     Dates: start: 20080310, end: 20080310
  3. ENBREL [Suspect]
     Indication: RHEUMATOID ARTHRITIS
     Dosage: 50MG ONCE PER WEEK SQ
     Route: 058
     Dates: start: 20080310, end: 20080310
  4. HYDROXYCHLOROQUINE SULFATE [Concomitant]
  5. DOXAZOSIN MESYLATE [Concomitant]
  6. DOXYCYCLINE [Concomitant]
  7. ANDROGEL [Concomitant]
  8. FEXOFENADINE HCL [Concomitant]
  9. ACIPHEX [Concomitant]
  10. VICODIN [Concomitant]

REACTIONS (27)
  - ARTHRALGIA [None]
  - ASTHENIA [None]
  - DIZZINESS [None]
  - DYSURIA [None]
  - EYE PRURITUS [None]
  - FATIGUE [None]
  - HEADACHE [None]
  - HYPERHIDROSIS [None]
  - INCOHERENT [None]
  - INFLUENZA [None]
  - INSOMNIA [None]
  - JOINT SWELLING [None]
  - LACRIMATION INCREASED [None]
  - MOVEMENT DISORDER [None]
  - MYALGIA [None]
  - NASAL INFLAMMATION [None]
  - NAUSEA [None]
  - NECK PAIN [None]
  - PAIN [None]
  - PAIN IN EXTREMITY [None]
  - PARANASAL SINUS HYPERSECRETION [None]
  - PHARYNGOLARYNGEAL PAIN [None]
  - PROSTATIC PAIN [None]
  - PRURITUS [None]
  - SINUS HEADACHE [None]
  - SNEEZING [None]
  - URINE FLOW DECREASED [None]
